FAERS Safety Report 6585971-X (Version None)
Quarter: 2010Q1

REPORT INFORMATION
  Report Type: 
  Country: None (occurrence: None)
  Receive Date: 20100217
  Receipt Date: 20100212
  Transmission Date: 20100710
  Serious: Yes (Hospitalization)
  Sender: FDA-Public Use
  Company Number: DE-SANOFI-AVENTIS-2010SA007388

PATIENT
  Age: 58 Year
  Sex: Male
  Weight: 51.8 kg

DRUGS (6)
  1. OXALIPLATIN [Suspect]
     Indication: RECTAL CANCER
     Route: 041
     Dates: start: 20090803, end: 20090803
  2. OXALIPLATIN [Suspect]
     Route: 041
     Dates: start: 20091229, end: 20091229
  3. CAPECITABINE [Suspect]
     Indication: RECTAL CANCER
     Route: 048
     Dates: start: 20090803, end: 20090817
  4. CAPECITABINE [Suspect]
     Route: 048
     Dates: start: 20091229, end: 20100102
  5. OXYGESIC [Concomitant]
     Indication: DRUG USE FOR UNKNOWN INDICATION
  6. FERRO-FOLSAN [Concomitant]
     Dates: start: 20091219

REACTIONS (8)
  - CYSTITIS [None]
  - DECREASED APPETITE [None]
  - DIARRHOEA [None]
  - DIZZINESS [None]
  - GASTROINTESTINAL STOMA COMPLICATION [None]
  - MUCOSAL HAEMORRHAGE [None]
  - OESOPHAGEAL CANDIDIASIS [None]
  - PAIN [None]
